FAERS Safety Report 5388461-5 (Version None)
Quarter: 2007Q3

REPORT INFORMATION
  Report Type: 
  Country: None (occurrence: None)
  Receive Date: 20070711
  Receipt Date: 20070627
  Transmission Date: 20080115
  Serious: Yes (Disabling)
  Sender: FDA-Public Use
  Company Number: 220001M07ITA

PATIENT
  Age: 18 Year
  Sex: Male

DRUGS (2)
  1. SAIZEN [Suspect]
     Dosage: 1.33 MG, 1 IN 1 DAYS, SUBCUTANEOUS
     Route: 058
  2. LEVOTHYROXINE SODIUM [Concomitant]

REACTIONS (2)
  - AMELOBLASTOMA [None]
  - NEOPLASM RECURRENCE [None]
